FAERS Safety Report 11705657 (Version 1)
Quarter: 2015Q4

REPORT INFORMATION
  Report Type: Spontaneous
  Country: US (occurrence: US)
  Receive Date: 20151106
  Receipt Date: 20151106
  Transmission Date: 20160304
  Serious: Yes (Other)
  Sender: FDA-Public Use
  Company Number: US-PFIZER INC-2015374653

PATIENT
  Sex: Male

DRUGS (1)
  1. PHENYTOIN SODIUM. [Suspect]
     Active Substance: PHENYTOIN SODIUM
     Dosage: 300 MG, DAILY (THREE 100 MG CAPSULES A DAY, ONE IN THE MORNING AND TWO AT NIGHT)

REACTIONS (4)
  - Dysstasia [Unknown]
  - Weight abnormal [Unknown]
  - Confusional state [Unknown]
  - Seizure [Unknown]
